FAERS Safety Report 5411097-4 (Version None)
Quarter: 2007Q3

REPORT INFORMATION
  Report Type: 
  Country: None (occurrence: None)
  Receive Date: 20070713
  Receipt Date: 20070416
  Transmission Date: 20080115
  Serious: No
  Sender: FDA-Public Use
  Company Number: 2007SP001372

PATIENT
  Age: 30 Year
  Sex: Female
  Weight: 81.6475 kg

DRUGS (2)
  1. LUNESTA [Suspect]
     Indication: INSOMNIA
     Dosage: 2 MG;HS;ORAL
     Route: 048
     Dates: start: 20070411
  2. LEXAPRO [Suspect]
     Indication: ANXIETY
     Dosage: 10 MG;QD;ORAL
     Route: 048
     Dates: start: 20070411

REACTIONS (1)
  - INSOMNIA [None]
